FAERS Safety Report 9049793 (Version 2)
Quarter: 2015Q1

REPORT INFORMATION
  Report Type: Spontaneous
  Country: ES (occurrence: ES)
  Receive Date: 20130205
  Receipt Date: 20150305
  Transmission Date: 20150721
  Serious: Yes (Other)
  Sender: FDA-Public Use
  Company Number: ES-PFIZER INC-2013043584

PATIENT
  Age: 36 Year
  Sex: Female

DRUGS (6)
  1. CEFAZOLIN [Concomitant]
     Active Substance: CEFAZOLIN
     Indication: SKIN GRAFT INFECTION
     Dosage: 2 G, 3X/DAY
     Route: 042
     Dates: start: 20120410
  2. ENANTYUM [Concomitant]
     Active Substance: DEXKETOPROFEN TROMETAMOL
     Indication: PAIN
     Dosage: 100 MG, DAILY
     Route: 042
     Dates: start: 20120410
  3. TAZOCEL [Suspect]
     Active Substance: PIPERACILLIN SODIUM\TAZOBACTAM SODIUM
     Indication: SKIN GRAFT INFECTION
     Dosage: 4 MG, 4X/DAY
     Route: 042
     Dates: start: 20120410, end: 20120426
  4. INYESPRIN [Concomitant]
     Indication: PAIN
     Dosage: UNK
     Route: 042
     Dates: start: 20120410
  5. NOLOTIL [Concomitant]
     Active Substance: METAMIZOLE
     Indication: PAIN
     Dosage: 8 G, DAILY
     Route: 042
     Dates: start: 20120425, end: 20120503
  6. PANTOPRAZOLE [Concomitant]
     Active Substance: PANTOPRAZOLE SODIUM
     Indication: PROPHYLAXIS AGAINST GASTROINTESTINAL ULCER
     Dosage: 40 MG, 1X/DAY
     Route: 042
     Dates: start: 20120410

REACTIONS (1)
  - Drug reaction with eosinophilia and systemic symptoms [Recovered/Resolved]

NARRATIVE: CASE EVENT DATE: 20120427
